FAERS Safety Report 12614073 (Version 1)
Quarter: 2016Q3

REPORT INFORMATION
  Report Type: Spontaneous
  Country: MX (occurrence: MX)
  Receive Date: 20160802
  Receipt Date: 20160802
  Transmission Date: 20161109
  Serious: Yes (Other)
  Sender: FDA-Public Use
  Company Number: MX-PFIZER INC-2016363631

PATIENT
  Age: 61 Year
  Sex: Female

DRUGS (6)
  1. CORDARONE [Suspect]
     Active Substance: AMIODARONE HYDROCHLORIDE
     Indication: VENTRICULAR ARRHYTHMIA
     Dosage: 200 MG, DAILY
     Route: 048
     Dates: start: 2012
  2. EVIPRESS [Concomitant]
     Dosage: UNK
     Dates: start: 2004
  3. CONCOR [Concomitant]
     Active Substance: BISOPROLOL FUMARATE
     Dosage: UNK
     Dates: start: 2004
  4. EDARBI [Concomitant]
     Active Substance: AZILSARTAN KAMEDOXOMIL
     Dosage: UNK
     Dates: start: 2004
  5. GLIMETAL [Concomitant]
     Dosage: UNK
     Dates: start: 2004
  6. PREDIAL [Concomitant]
     Dosage: UNK
     Dates: start: 2004

REACTIONS (1)
  - Rheumatoid arthritis [Not Recovered/Not Resolved]

NARRATIVE: CASE EVENT DATE: 2014
